FAERS Safety Report 17410240 (Version 2)
Quarter: 2020Q1

REPORT INFORMATION
  Report Type: Spontaneous
  Country: US (occurrence: US)
  Receive Date: 20200212
  Receipt Date: 20200224
  Transmission Date: 20200409
  Serious: No
  Sender: FDA-Public Use
  Company Number: US-SA-2020SA034421

PATIENT
  Age: 31 Year
  Sex: Female

DRUGS (2)
  1. CABLIVI [Suspect]
     Active Substance: CAPLACIZUMAB-YHDP
     Indication: THROMBOTIC MICROANGIOPATHY
     Dosage: 11 MG, QD
     Route: 058
     Dates: start: 20200129
  2. RITUXAN [Concomitant]
     Active Substance: RITUXIMAB
     Route: 042

REACTIONS (10)
  - Pain [Unknown]
  - Head discomfort [Unknown]
  - Palpitations [Unknown]
  - Depression [Unknown]
  - Swelling [Unknown]
  - Back pain [Unknown]
  - Emotional disorder [Unknown]
  - Fluid retention [Unknown]
  - Epistaxis [Unknown]
  - Dyspnoea [Unknown]
